FAERS Safety Report 18203201 (Version 1)
Quarter: 2020Q3

REPORT INFORMATION
  Report Type: Spontaneous
  Country: TR (occurrence: TR)
  Receive Date: 20200827
  Receipt Date: 20200827
  Transmission Date: 20201103
  Serious: Yes (Hospitalization, Other)
  Sender: FDA-Public Use
  Company Number: TR-AMNEAL PHARMACEUTICALS-2020-AMRX-02564

PATIENT
  Age: 28 Year
  Sex: Male

DRUGS (3)
  1. HYDROXYCHLOROQUINE SULFATE. [Suspect]
     Active Substance: HYDROXYCHLOROQUINE SULFATE
     Dosage: 1600 MILLIGRAM, ACCIDENTALLY TAKEN
     Route: 048
  2. HYDROXYCHLOROQUINE SULFATE. [Suspect]
     Active Substance: HYDROXYCHLOROQUINE SULFATE
     Indication: COVID-19
     Dosage: 200 MILLIGRAM, 2 /DAY FOR 5 DAYS
     Route: 048
  3. OSELTAMIVIR [Concomitant]
     Active Substance: OSELTAMIVIR
     Indication: COVID-19
     Dosage: 75 MILLIGRAM, 2 /DAY FOR 5 DAYS
     Route: 048

REACTIONS (7)
  - Accidental overdose [Unknown]
  - Asthenia [Unknown]
  - Electrocardiogram QT prolonged [Recovered/Resolved]
  - Nausea [Unknown]
  - Sinus bradycardia [Recovered/Resolved]
  - Off label use [Unknown]
  - Diarrhoea [Unknown]
